FAERS Safety Report 8776473 (Version 1)
Quarter: 2012Q4

REPORT INFORMATION
  Report Type: 
  Country: GB (occurrence: GB)
  Receive Date: 20120910
  Receipt Date: 20120910
  Transmission Date: 20130627
  Serious: Yes (Other)
  Sender: FDA-Public Use
  Company Number: PHHY2012GB008547

PATIENT
  Age: 22 Year
  Sex: Female
  Weight: 65 kg

DRUGS (2)
  1. CLINDAMYCIN [Suspect]
     Dosage: 150 mg, UNK
     Route: 048
     Dates: start: 20111206, end: 20111226
  2. WARFARIN [Concomitant]
     Indication: PULMONARY EMBOLISM

REACTIONS (1)
  - Memory impairment [Not Recovered/Not Resolved]
